FAERS Safety Report 11504632 (Version 1)
Quarter: 2015Q3

REPORT INFORMATION
  Report Type: Spontaneous
  Country: US (occurrence: US)
  Receive Date: 20150915
  Receipt Date: 20150915
  Transmission Date: 20151125
  Serious: Yes (Other)
  Sender: FDA-Public Use
  Company Number: US-ROCHE-690706

PATIENT
  Age: 59 Year
  Sex: Male
  Weight: 180 kg

DRUGS (3)
  1. PEGASYS [Suspect]
     Active Substance: PEGINTERFERON ALFA-2A
     Route: 065
  2. PEGASYS [Suspect]
     Active Substance: PEGINTERFERON ALFA-2A
     Indication: HEPATITIS C
     Dosage: FORM: PREFILLED SYRINGE
     Route: 065
     Dates: start: 20100131, end: 20100223
  3. RIBAVIRIN. [Suspect]
     Active Substance: RIBAVIRIN
     Indication: HEPATITIS C
     Dosage: IN DIVIDED DOSES, FREQUENCY: DAILY
     Route: 065

REACTIONS (8)
  - Flatulence [Unknown]
  - Abdominal pain upper [Unknown]
  - Malaise [Unknown]
  - Platelet count decreased [Unknown]
  - Diarrhoea [Unknown]
  - Weight decreased [Unknown]
  - Irritability [Unknown]
  - Nausea [Unknown]

NARRATIVE: CASE EVENT DATE: 20100308
